FAERS Safety Report 20217241 (Version 1)
Quarter: 2021Q4

REPORT INFORMATION
  Report Type: Report from Study
  Country: BR (occurrence: BR)
  Receive Date: 20211222
  Receipt Date: 20211222
  Transmission Date: 20220304
  Serious: Yes (Hospitalization)
  Sender: FDA-Public Use
  Company Number: BR-JNJFOC-20211238750

PATIENT
  Sex: Female
  Weight: 90 kg

DRUGS (1)
  1. INFLIXIMAB [Suspect]
     Active Substance: INFLIXIMAB
     Indication: Psoriasis
     Dosage: LAST INFUSION WAS ON 28-NOV-2021
     Route: 042
     Dates: start: 20140120

REACTIONS (2)
  - COVID-19 [Unknown]
  - Cardiac disorder [Unknown]
